FAERS Safety Report 4426565-1 (Version None)
Quarter: 2004Q3

REPORT INFORMATION
  Report Type: 
  Country: None (occurrence: None)
  Receive Date: 20040816
  Receipt Date: 20040810
  Transmission Date: 20050211
  Serious: Yes (Hospitalization)
  Sender: FDA-Public Use
  Company Number: US-BRISTOL-MYERS SQUIBB COMPANY-12666905

PATIENT
  Age: 58 Year
  Sex: Female
  Weight: 50 kg

DRUGS (2)
  1. PRAVACHOL [Suspect]
     Indication: BLOOD CHOLESTEROL INCREASED
     Route: 048
     Dates: start: 20030701, end: 20040229
  2. RADIATION THERAPY [Suspect]
     Indication: UTERINE CANCER

REACTIONS (2)
  - INTESTINAL OBSTRUCTION [None]
  - SLEEP PHASE RHYTHM DISTURBANCE [None]
